FAERS Safety Report 19234296 (Version 2)
Quarter: 2021Q2

REPORT INFORMATION
  Report Type: Report from Study
  Country: US (occurrence: US)
  Receive Date: 20210508
  Receipt Date: 20210520
  Transmission Date: 20210717
  Serious: No
  Sender: FDA-Public Use
  Company Number: US-ORGANON-O2104USA002505

PATIENT
  Sex: Female
  Weight: 72.12 kg

DRUGS (2)
  1. IMPLANON [Suspect]
     Active Substance: ETONOGESTREL
     Dosage: 1 IMPLANT, 68 MILLIGRAM
     Route: 059
     Dates: end: 20210222
  2. IMPLANON [Suspect]
     Active Substance: ETONOGESTREL
     Dosage: 1 IMPLANT, 68 MG
     Route: 059
     Dates: start: 20210222

REACTIONS (6)
  - Paraesthesia [Unknown]
  - Muscle strength abnormal [Unknown]
  - Muscular weakness [Unknown]
  - Implant site scar [Unknown]
  - Skin wrinkling [Unknown]
  - Implant site pain [Unknown]
